FAERS Safety Report 6957236-5 (Version None)
Quarter: 2010Q3

REPORT INFORMATION
  Report Type: 
  Country: None (occurrence: None)
  Receive Date: 20100826
  Receipt Date: 20100810
  Transmission Date: 20110219
  Serious: Yes (Other)
  Sender: FDA-Public Use
  Company Number: 017074

PATIENT
  Sex: Female

DRUGS (2)
  1. LACOSAMIDE [Suspect]
  2. LEVETIRACETAM [Suspect]

REACTIONS (2)
  - HEPATIC ENZYME INCREASED [None]
  - TYPE IV HYPERSENSITIVITY REACTION [None]
